FAERS Safety Report 18947630 (Version 1)
Quarter: 2021Q1

REPORT INFORMATION
  Report Type: Spontaneous
  Country: CA (occurrence: CA)
  Receive Date: 20210226
  Receipt Date: 20210226
  Transmission Date: 20210420
  Serious: Yes (Other)
  Sender: FDA-Public Use
  Company Number: CA-TAKEDA-2021TUS011068

PATIENT
  Sex: Female

DRUGS (1)
  1. KIOVIG [Suspect]
     Active Substance: HUMAN IMMUNOGLOBULIN G
     Indication: PRODUCT USED FOR UNKNOWN INDICATION
     Dosage: 60 GRAM
     Route: 042

REACTIONS (7)
  - Blood bilirubin increased [Recovered/Resolved]
  - Reticulocyte percentage increased [Recovered/Resolved]
  - Haemorrhage [Recovered/Resolved]
  - Delayed serologic transfusion reaction [Recovered/Resolved]
  - Haemoglobin decreased [Recovered/Resolved]
  - Haemolysis [Recovered/Resolved]
  - Coombs direct test positive [Recovered/Resolved]
